FAERS Safety Report 5327064-5 (Version None)
Quarter: 2007Q2

REPORT INFORMATION
  Report Type: 
  Country: None (occurrence: None)
  Receive Date: 20070517
  Receipt Date: 20070508
  Transmission Date: 20071010
  Serious: Yes (Other)
  Sender: FDA-Public Use
  Company Number: PHEH2007US06808

PATIENT
  Age: 59 Year
  Sex: Female

DRUGS (12)
  1. ZELNORM [Suspect]
     Indication: GASTROINTESTINAL MOTILITY DISORDER
     Dosage: 6 MG, BID
     Route: 048
     Dates: start: 20060301, end: 20070501
  2. METAMUCIL [Concomitant]
  3. METFORMIN HCL [Concomitant]
     Route: 048
  4. LANTUS [Concomitant]
     Route: 058
  5. ACCUPRIL [Concomitant]
     Route: 048
  6. NEXIUM [Concomitant]
     Route: 048
  7. ACTOS [Concomitant]
     Route: 048
  8. LASIX [Concomitant]
     Route: 048
  9. K-DUR 10 [Concomitant]
     Route: 048
  10. FOLIC ACID [Concomitant]
     Route: 048
  11. ATENOLOL [Concomitant]
     Route: 048
  12. ACETYLSALICYLIC ACID SRT [Concomitant]
     Route: 048

REACTIONS (7)
  - CARDIAC DISORDER [None]
  - CARDIAC STRESS TEST ABNORMAL [None]
  - DYSPNOEA [None]
  - FATIGUE [None]
  - HYPOAESTHESIA [None]
  - JOINT SWELLING [None]
  - PARAESTHESIA [None]
